FAERS Safety Report 5504710-4 (Version None)
Quarter: 2007Q4

REPORT INFORMATION
  Report Type: 
  Country: None (occurrence: None)
  Receive Date: 20071031
  Receipt Date: 20071019
  Transmission Date: 20080405
  Serious: Yes (Other)
  Sender: FDA-Public Use
  Company Number: 2007-03367

PATIENT
  Age: 47 Year
  Sex: Male
  Weight: 69 kg

DRUGS (6)
  1. VELCADE [Suspect]
     Indication: MULTIPLE MYELOMA
     Dosage: 2.46 MG, INTRAVENOUS
     Route: 042
     Dates: start: 20070904, end: 20070914
  2. DEXAMETHASONE [Concomitant]
  3. SEROTONE (AZASETRON HYDROCHLORIDE) [Concomitant]
  4. FAMOTIDINE [Concomitant]
  5. METHYCOBAL (MECOBALAMIN) [Concomitant]
  6. SHAKUYAKUKANZOUTOU (HERBAL EXTRACTS NOS) [Concomitant]

REACTIONS (6)
  - C-REACTIVE PROTEIN INCREASED [None]
  - HICCUPS [None]
  - HOT FLUSH [None]
  - HYPERTENSION [None]
  - NEUROPATHY PERIPHERAL [None]
  - PLATELET COUNT DECREASED [None]
